FAERS Safety Report 9192338 (Version 3)
Quarter: 2013Q2

REPORT INFORMATION
  Report Type: Spontaneous
  Country: US (occurrence: US)
  Receive Date: 20130327
  Receipt Date: 20130610
  Transmission Date: 20140414
  Serious: Yes (Hospitalization)
  Sender: FDA-Public Use
  Company Number: US-JNJFOC-20130311160

PATIENT
  Sex: Male

DRUGS (1)
  1. INVEGA SUSTENNA [Suspect]
     Indication: SCHIZOAFFECTIVE DISORDER
     Route: 030
     Dates: start: 20121010, end: 20130411

REACTIONS (7)
  - Injection site infection [Recovered/Resolved]
  - Injection site swelling [Recovered/Resolved]
  - Depression [Unknown]
  - Irritability [Unknown]
  - Depressed mood [Unknown]
  - Injection site rash [Unknown]
  - Refusal of treatment by patient [Unknown]
